FAERS Safety Report 20491427 (Version 1)
Quarter: 2022Q1

REPORT INFORMATION
  Report Type: Spontaneous
  Country: PE (occurrence: None)
  Receive Date: 20220218
  Receipt Date: 20220218
  Transmission Date: 20220424
  Serious: Yes (Disabling)
  Sender: FDA-Public Use
  Company Number: None

PATIENT
  Age: 47 Year
  Sex: Female
  Weight: 64 kg

DRUGS (1)
  1. PROPRANOLOL [Suspect]
     Active Substance: PROPRANOLOL HYDROCHLORIDE
     Indication: Migraine
     Dosage: FREQUENCY : TWICE A DAY;?
     Route: 048
     Dates: start: 20210315, end: 20210326

REACTIONS (5)
  - Heart rate decreased [None]
  - Cardiac arrest [None]
  - Heart rate irregular [None]
  - Haemoglobin decreased [None]
  - Loss of employment [None]

NARRATIVE: CASE EVENT DATE: 20210315
